FAERS Safety Report 9243979 (Version 1)
Quarter: 2013Q1

REPORT INFORMATION
  Report Type: Spontaneous
  Country: US (occurrence: None)
  Receive Date: 20121123
  Receipt Date: 20121123
  Transmission Date: 20140127
  Serious: No
  Sender: FDA-Public Use
  Company Number: 360083

PATIENT
  Age: 66 Year
  Sex: Male

DRUGS (2)
  1. VICTOZA (LIRAGLUTIDE)SOLUTION FOR INJECTION, 6MG/ML [Suspect]
     Indication: TYPE 2 DIABETES MELLITUS
     Route: 058
     Dates: start: 20120906
  2. METFORMIN (METFORMIN) [Concomitant]

REACTIONS (4)
  - Asthenia [None]
  - Fatigue [None]
  - Feeling abnormal [None]
  - Thinking abnormal [None]
